FAERS Safety Report 7491805-1 (Version None)
Quarter: 2011Q2

REPORT INFORMATION
  Report Type: 
  Country: None (occurrence: None)
  Receive Date: 20110519
  Receipt Date: 20110513
  Transmission Date: 20111010
  Serious: Yes (Other)
  Sender: FDA-Public Use
  Company Number: US-MERCK-1105USA02530

PATIENT
  Sex: Female

DRUGS (2)
  1. FOSAMAX [Suspect]
     Route: 048
     Dates: start: 20000701, end: 20080101
  2. ALENDRONATE SODIUM [Suspect]
     Route: 065
     Dates: start: 20000701, end: 20080101

REACTIONS (2)
  - OSTEONECROSIS [None]
  - OSTEOPOROSIS [None]
